FAERS Safety Report 10530228 (Version 1)
Quarter: 2014Q4

REPORT INFORMATION
  Report Type: Spontaneous
  Country: DE (occurrence: None)
  Receive Date: 20141017
  Receipt Date: 20141017
  Transmission Date: 20150528
  Serious: Yes (Other)
  Sender: FDA-Public Use
  Company Number: COL_18254_2014

PATIENT
  Sex: Female

DRUGS (1)
  1. MERIDOL [Suspect]
     Active Substance: CHLORHEXIDINE GLUCONATE
     Indication: PRODUCT USED FOR UNKNOWN INDICATION
     Dosage: (NI/NI/ORAL)
     Route: 048

REACTIONS (4)
  - Eating disorder [None]
  - Hypoaesthesia oral [None]
  - Speech disorder [None]
  - Tongue paralysis [None]
